FAERS Safety Report 23446901 (Version 2)
Quarter: 2024Q1

REPORT INFORMATION
  Report Type: Spontaneous
  Country: US (occurrence: US)
  Receive Date: 20240126
  Receipt Date: 20240129
  Transmission Date: 20240410
  Serious: No
  Sender: FDA-Public Use
  Company Number: US-PFIZER INC-202400025111

PATIENT
  Age: 45 Year
  Sex: Male

DRUGS (1)
  1. BOSULIF [Suspect]
     Active Substance: BOSUTINIB MONOHYDRATE
     Dosage: TAKE 1 TABLET DAILY WITH ONE 500 MG TABLET FOR TOTAL DOSE OF 600 MG
     Route: 048

REACTIONS (1)
  - Diarrhoea [Not Recovered/Not Resolved]
